FAERS Safety Report 18210720 (Version 1)
Quarter: 2020Q3

REPORT INFORMATION
  Report Type: Spontaneous
  Country: CA (occurrence: CA)
  Receive Date: 20200829
  Receipt Date: 20200829
  Transmission Date: 20201103
  Serious: Yes (Life-Threatening, Hospitalization)
  Sender: FDA-Public Use
  Company Number: CA-TEVA-2020-CA-1819073

PATIENT
  Age: 2 Year
  Sex: Female
  Weight: 14 kg

DRUGS (9)
  1. FILGRASTIM [Concomitant]
     Active Substance: FILGRASTIM
  2. DEXAMETHASONE. [Concomitant]
     Active Substance: DEXAMETHASONE
     Route: 065
  3. OMEPRAZOLE. [Concomitant]
     Active Substance: OMEPRAZOLE
  4. SEPTRA [Concomitant]
     Active Substance: SULFAMETHOXAZOLE\TRIMETHOPRIM
  5. SPIRONOLACTONE. [Concomitant]
     Active Substance: SPIRONOLACTONE
  6. DOXORUBICIN LIPOSOMAL [Concomitant]
     Active Substance: DOXORUBICIN
  7. CISPLATIN INJECTION [Suspect]
     Active Substance: CISPLATIN
     Indication: HEPATOBLASTOMA
     Route: 042
  8. DOMPERIDONE [Concomitant]
     Active Substance: DOMPERIDONE
  9. ONDANSETRON [Concomitant]
     Active Substance: ONDANSETRON

REACTIONS (5)
  - Vomiting [Recovering/Resolving]
  - Hypomagnesaemia [Recovering/Resolving]
  - Hypophosphataemia [Recovering/Resolving]
  - Diarrhoea [Recovering/Resolving]
  - Hypokalaemia [Recovering/Resolving]
